FAERS Safety Report 4525485-1 (Version None)
Quarter: 2004Q4

REPORT INFORMATION
  Report Type: 
  Country: None (occurrence: None)
  Receive Date: 20041116
  Receipt Date: 20040824
  Transmission Date: 20050328
  Serious: No
  Sender: FDA-Public Use
  Company Number: S04-USA-05822-01

PATIENT
  Age: 82 Year
  Sex: Female

DRUGS (7)
  1. NAMENDA [Suspect]
     Indication: DEMENTIA ALZHEIMER'S TYPE
     Dosage: 5 MG QD PO
     Route: 048
     Dates: start: 20040801, end: 20040801
  2. NAMENDA [Suspect]
     Indication: DEMENTIA ALZHEIMER'S TYPE
     Dosage: 5 MG BID PO
     Route: 048
     Dates: start: 20040801
  3. ARICEPT [Concomitant]
  4. ZYPREXA [Concomitant]
  5. ZOLOFT [Concomitant]
  6. PRILOSEC [Concomitant]
  7. MULTI-VITAMINS [Concomitant]

REACTIONS (1)
  - CONFUSIONAL STATE [None]
